FAERS Safety Report 6779236-0 (Version None)
Quarter: 2010Q2

REPORT INFORMATION
  Report Type: 
  Country: None (occurrence: None)
  Receive Date: 20100618
  Receipt Date: 20100609
  Transmission Date: 20101027
  Serious: Yes (Death, Hospitalization)
  Sender: FDA-Public Use
  Company Number: BE-SANOFI-AVENTIS-2010SA033182

PATIENT
  Age: 55 Year
  Sex: Female

DRUGS (8)
  1. OXALIPLATIN [Suspect]
     Route: 042
     Dates: start: 20100302, end: 20100302
  2. OXALIPLATIN [Suspect]
     Route: 042
     Dates: start: 20100413, end: 20100413
  3. ELVORINE [Suspect]
     Route: 042
     Dates: start: 20100302, end: 20100302
  4. ELVORINE [Suspect]
     Route: 042
     Dates: start: 20100413, end: 20100413
  5. FLUOROURACIL [Suspect]
     Route: 042
     Dates: start: 20100302, end: 20100302
  6. FLUOROURACIL [Suspect]
     Route: 042
     Dates: start: 20100413, end: 20100413
  7. AVASTIN [Suspect]
     Route: 042
     Dates: start: 20100302, end: 20100302
  8. AVASTIN [Suspect]
     Route: 042
     Dates: start: 20100413, end: 20100413

REACTIONS (3)
  - GASTROINTESTINAL PERFORATION [None]
  - POST PROCEDURAL COMPLICATION [None]
  - VOMITING [None]
